FAERS Safety Report 19132918 (Version 3)
Quarter: 2023Q2

REPORT INFORMATION
  Report Type: Spontaneous
  Country: US (occurrence: US)
  Receive Date: 20210413
  Receipt Date: 20230505
  Transmission Date: 20230721
  Serious: Yes (Other)
  Sender: FDA-Public Use
  Company Number: US-GILEAD-2021-0524844

PATIENT
  Sex: Male
  Weight: 51.247 kg

DRUGS (41)
  1. COMPLERA [Suspect]
     Active Substance: EMTRICITABINE\RILPIVIRINE HYDROCHLORIDE\TENOFOVIR DISOPROXIL FUMARATE
     Indication: HIV infection
     Dosage: UNK
     Route: 048
     Dates: start: 20151002, end: 20151101
  2. ATRIPLA [Suspect]
     Active Substance: EFAVIRENZ\EMTRICITABINE\TENOFOVIR DISOPROXIL FUMARATE
     Indication: HIV infection
     Dosage: UNK
     Route: 048
     Dates: start: 20130905, end: 20140117
  3. STRIBILD [Suspect]
     Active Substance: COBICISTAT\ELVITEGRAVIR\EMTRICITABINE\TENOFOVIR DISOPROXIL FUMARATE
     Indication: HIV infection
     Dosage: UNK
     Route: 048
     Dates: start: 20141029, end: 20150930
  4. TRUVADA [Suspect]
     Active Substance: EMTRICITABINE\TENOFOVIR DISOPROXIL FUMARATE
     Indication: HIV infection
     Dosage: UNK
     Route: 048
     Dates: start: 20140225, end: 20140926
  5. ODEFSEY [Concomitant]
     Active Substance: EMTRICITABINE\RILPIVIRINE HYDROCHLORIDE\TENOFOVIR ALAFENAMIDE FUMARATE
  6. METHADONE [Concomitant]
     Active Substance: METHADONE HYDROCHLORIDE
  7. ISENTRESS [Concomitant]
     Active Substance: RALTEGRAVIR POTASSIUM
  8. JULUCA [Concomitant]
     Active Substance: DOLUTEGRAVIR SODIUM\RILPIVIRINE HYDROCHLORIDE
  9. NORVIR [Concomitant]
     Active Substance: RITONAVIR
  10. REYATAZ [Concomitant]
     Active Substance: ATAZANAVIR SULFATE
  11. ACYCLOVIR [Concomitant]
     Active Substance: ACYCLOVIR
  12. AMOXICILLIN [Concomitant]
     Active Substance: AMOXICILLIN
  13. MEPRON [Concomitant]
     Active Substance: ATOVAQUONE
  14. AUGMENTIN [Concomitant]
     Active Substance: AMOXICILLIN\CLAVULANATE POTASSIUM
  15. AZITHROMYCIN [Concomitant]
     Active Substance: AZITHROMYCIN
  16. BACITRACIN [Concomitant]
     Active Substance: BACITRACIN
  17. BUPRENEX [Concomitant]
     Active Substance: BUPRENORPHINE HYDROCHLORIDE
  18. CEPHALEXIN [Concomitant]
     Active Substance: CEPHALEXIN
  19. CIPROFLOXACIN [Concomitant]
     Active Substance: CIPROFLOXACIN
  20. CLINDAMYCIN [Concomitant]
     Active Substance: CLINDAMYCIN
  21. CLOTRIMAZOLE [Concomitant]
     Active Substance: CLOTRIMAZOLE
  22. DICYCLOMINE [Concomitant]
     Active Substance: DICYCLOMINE HYDROCHLORIDE
  23. DRONABINOL [Concomitant]
     Active Substance: DRONABINOL
  24. ERYTHROMYCIN [Concomitant]
     Active Substance: ERYTHROMYCIN
  25. HYDROCORTISONE [Concomitant]
     Active Substance: HYDROCORTISONE
  26. LIDOCAINE [Concomitant]
     Active Substance: LIDOCAINE
  27. METHYLPREDNISOLONE [Concomitant]
     Active Substance: METHYLPREDNISOLONE
  28. METRONIDAZOLE [Concomitant]
     Active Substance: METRONIDAZOLE
  29. NARCAN [Concomitant]
     Active Substance: NALOXONE HYDROCHLORIDE
  30. NEOMYCIN [Concomitant]
     Active Substance: NEOMYCIN
  31. NORTRIPTYLINE [Concomitant]
     Active Substance: NORTRIPTYLINE
  32. NYSTATIN [Concomitant]
     Active Substance: NYSTATIN
  33. OMEPRAZOLE [Concomitant]
     Active Substance: OMEPRAZOLE
  34. ONDANSETRON [Concomitant]
     Active Substance: ONDANSETRON
  35. POLYETHYLENE GLYCOL, UNSPECIFIED [Concomitant]
     Active Substance: POLYETHYLENE GLYCOL, UNSPECIFIED
  36. PREDNISONE [Concomitant]
     Active Substance: PREDNISONE
  37. PROMETHAZINE [Concomitant]
     Active Substance: PROMETHAZINE HYDROCHLORIDE
  38. SUBOXONE [Concomitant]
     Active Substance: BUPRENORPHINE HYDROCHLORIDE\NALOXONE HYDROCHLORIDE
  39. SULFAMETHOXAZOLE [Concomitant]
     Active Substance: SULFAMETHOXAZOLE
  40. SUMATRIPTAN [Concomitant]
     Active Substance: SUMATRIPTAN
  41. ZITHROMAX [Concomitant]
     Active Substance: AZITHROMYCIN DIHYDRATE

REACTIONS (15)
  - Osteoporosis [Not Recovered/Not Resolved]
  - Renal impairment [Not Recovered/Not Resolved]
  - Bone demineralisation [Not Recovered/Not Resolved]
  - Pain [Not Recovered/Not Resolved]
  - Emotional distress [Not Recovered/Not Resolved]
  - Anxiety [Not Recovered/Not Resolved]
  - Anhedonia [Not Recovered/Not Resolved]
  - Vomiting [Unknown]
  - Eating disorder [Not Recovered/Not Resolved]
  - Mastication disorder [Not Recovered/Not Resolved]
  - Underweight [Not Recovered/Not Resolved]
  - Drug intolerance [Unknown]
  - Illness [Unknown]
  - Asthenia [Unknown]
  - Blood creatinine increased [Not Recovered/Not Resolved]

NARRATIVE: CASE EVENT DATE: 20140101
